FAERS Safety Report 24301421 (Version 1)
Quarter: 2024Q3

REPORT INFORMATION
  Report Type: Spontaneous
  Country: ES (occurrence: ES)
  Receive Date: 20240910
  Receipt Date: 20240910
  Transmission Date: 20241016
  Serious: Yes (Hospitalization)
  Sender: AMGEN
  Company Number: ES-ROCHE-3116348

PATIENT
  Age: 76 Year
  Sex: Male
  Weight: 85.6 kg

DRUGS (20)
  1. TRASTUZUMAB [Suspect]
     Active Substance: TRASTUZUMAB
     Indication: Gastrooesophageal cancer
     Dosage: ON 30-MAY-2022 9:45 AM TO 11:20 AM, THE PATIENT RECEIVED MOST RECENT DOSE OF STUDY DRUG (672 MG) PRI
     Route: 040
     Dates: start: 20220530
  2. OMEPRAZOLE [Concomitant]
     Active Substance: OMEPRAZOLE
     Indication: Hiatus hernia
     Dosage: 20 MILLIGRAM, QD
     Route: 048
     Dates: start: 202105
  3. LOPERAMIDE [Concomitant]
     Active Substance: LOPERAMIDE
     Indication: Diarrhoea
     Dosage: 2 MILLIGRAM
     Route: 065
  4. FAMOTIDINE [Concomitant]
     Active Substance: FAMOTIDINE
     Indication: Product used for unknown indication
     Dosage: 40 GRAM
     Route: 040
     Dates: start: 20220607, end: 20220607
  5. FAMOTIDINE [Concomitant]
     Active Substance: FAMOTIDINE
     Dosage: 40 GRAM
     Route: 040
     Dates: start: 20220531, end: 20220531
  6. DEXAMETHASONE [Concomitant]
     Active Substance: DEXAMETHASONE
     Indication: Product used for unknown indication
     Dosage: 20 GRAM
     Route: 040
     Dates: start: 20220531, end: 20220531
  7. DEXAMETHASONE [Concomitant]
     Active Substance: DEXAMETHASONE
     Dosage: 20 GRAM
     Route: 040
     Dates: start: 20220607, end: 20220607
  8. DEXCHLORPHENIRAMINE [Concomitant]
     Active Substance: DEXCHLORPHENIRAMINE
     Indication: Product used for unknown indication
     Dosage: 5 MILLIGRAM
     Route: 040
     Dates: start: 20220531, end: 20220531
  9. DEXCHLORPHENIRAMINE [Concomitant]
     Active Substance: DEXCHLORPHENIRAMINE
     Dosage: 5 MILLIGRAM
     Route: 040
     Dates: start: 20220607, end: 20220607
  10. DEXCHLORPHENIRAMINE [Concomitant]
     Active Substance: DEXCHLORPHENIRAMINE
     Dosage: 5 MILLIGRAM
     Route: 040
     Dates: start: 20220530, end: 20220530
  11. ACETAMINOPHEN [Concomitant]
     Active Substance: ACETAMINOPHEN
     Indication: Product used for unknown indication
     Dosage: 1 GRAM
     Route: 040
     Dates: start: 20220530, end: 20220530
  12. ACETAMINOPHEN [Concomitant]
     Active Substance: ACETAMINOPHEN
     Dosage: 1 GRAM
     Route: 040
     Dates: start: 20220531, end: 20220531
  13. ACETAMINOPHEN [Concomitant]
     Active Substance: ACETAMINOPHEN
     Dosage: 1 GRAM
     Route: 040
     Dates: start: 20220607, end: 20220607
  14. OMEGA-3 ACIDS [Concomitant]
     Active Substance: OMEGA-3 FATTY ACIDS
     Indication: Eye disorder
     Dosage: 1 CAPSULE
     Route: 048
     Dates: start: 201810
  15. CHOLECALCIFEROL [Concomitant]
     Active Substance: CHOLECALCIFEROL
     Indication: Vitamin D deficiency
     Dosage: 1 CAPSULE
     Route: 048
     Dates: start: 202105
  16. PREDNISONE [Concomitant]
     Active Substance: PREDNISONE
     Indication: Colorectal cancer
     Dosage: 15 MILLIGRAM, QD
     Route: 048
     Dates: start: 20220613, end: 20220614
  17. DUTASTERIDE\TAMSULOSIN HYDROCHLORIDE [Concomitant]
     Active Substance: DUTASTERIDE\TAMSULOSIN HYDROCHLORIDE
     Indication: Benign prostatic hyperplasia
     Dosage: 1 TABLET
     Route: 048
     Dates: start: 201501
  18. EBASTINE [Concomitant]
     Active Substance: EBASTINE
     Indication: Rhinitis allergic
     Dosage: 1 TABLET
     Route: 048
     Dates: start: 201901
  19. METFORMIN HYDROCHLORIDE [Concomitant]
     Active Substance: METFORMIN HYDROCHLORIDE
     Indication: Type 2 diabetes mellitus
     Dosage: 0.5 TABLET
     Route: 048
     Dates: start: 202204
  20. CIPROFLOXACIN [Concomitant]
     Active Substance: CIPROFLOXACIN
     Indication: Diarrhoea
     Dosage: 400 MILLIGRAM
     Route: 040

REACTIONS (1)
  - Cytokine release syndrome [Recovered/Resolved]

NARRATIVE: CASE EVENT DATE: 20220608
